FAERS Safety Report 16554103 (Version 1)
Quarter: 2019Q3

REPORT INFORMATION
  Report Type: Spontaneous
  Country: US (occurrence: US)
  Receive Date: 20190529
  Receipt Date: 20190529
  Transmission Date: 20191004
  Serious: No
  Sender: FDA-Public Use
  Company Number: None

PATIENT
  Sex: Female

DRUGS (1)
  1. COSENTYX [Suspect]
     Active Substance: SECUKINUMAB
     Indication: PSORIASIS
     Dosage: ?          OTHER DOSE:2 PENS;OTHER FREQUENCY:WK 4+Q4 WKS AFTER;?
     Route: 058
     Dates: start: 20100402

REACTIONS (2)
  - Condition aggravated [None]
  - Myocardial infarction [None]
